FAERS Safety Report 14840518 (Version 1)
Quarter: 2018Q2

REPORT INFORMATION
  Report Type: Spontaneous
  Country: GB (occurrence: GB)
  Receive Date: 20180503
  Receipt Date: 20180503
  Transmission Date: 20180711
  Serious: Yes (Disabling)
  Sender: FDA-Public Use
  Company Number: GB-DRREDDYS-GER/UKI/18/0098269

PATIENT
  Age: 43 Year
  Sex: Female
  Weight: 60.32 kg

DRUGS (4)
  1. DULOXETINE. [Suspect]
     Active Substance: DULOXETINE
     Indication: DEPRESSION
     Route: 048
  2. ACICLOVIR [Concomitant]
     Active Substance: ACYCLOVIR
     Indication: PRODUCT USED FOR UNKNOWN INDICATION
  3. DULOXETINE. [Suspect]
     Active Substance: DULOXETINE
     Route: 048
  4. DULOXETINE. [Suspect]
     Active Substance: DULOXETINE
     Route: 048
     Dates: start: 2016

REACTIONS (15)
  - Anxiety [Not Recovered/Not Resolved]
  - Nightmare [Not Recovered/Not Resolved]
  - Paraesthesia [Unknown]
  - Crying [Not Recovered/Not Resolved]
  - Malaise [Not Recovered/Not Resolved]
  - Sedation [Not Recovered/Not Resolved]
  - Night sweats [Not Recovered/Not Resolved]
  - Irritability [Not Recovered/Not Resolved]
  - Dyspnoea [Not Recovered/Not Resolved]
  - Heart rate irregular [Not Recovered/Not Resolved]
  - Abdominal discomfort [Not Recovered/Not Resolved]
  - Suicidal ideation [Not Recovered/Not Resolved]
  - Negative thoughts [Not Recovered/Not Resolved]
  - Depression [Not Recovered/Not Resolved]
  - Thinking abnormal [Not Recovered/Not Resolved]

NARRATIVE: CASE EVENT DATE: 2016
